FAERS Safety Report 9440169 (Version 1)
Quarter: 2013Q3

REPORT INFORMATION
  Report Type: Spontaneous
  Country: US (occurrence: US)
  Receive Date: 20130805
  Receipt Date: 20130805
  Transmission Date: 20140515
  Serious: Yes (Hospitalization, Other)
  Sender: FDA-Public Use
  Company Number: PHEH2013US013911

PATIENT
  Sex: Male
  Weight: 98 kg

DRUGS (11)
  1. SIMULECT [Suspect]
     Indication: IMMUNOSUPPRESSION
     Dosage: 20 MG, UNK
     Route: 042
     Dates: start: 20130620
  2. SIMULECT [Suspect]
     Dosage: 20 MG, UNK
     Dates: start: 20130621
  3. CELLCEPT [Concomitant]
     Dosage: 500 MG, BID
     Route: 048
     Dates: start: 20130620, end: 20130622
  4. CELLCEPT [Concomitant]
     Dosage: 1000 MG, BID
     Route: 048
     Dates: start: 20130622
  5. PREDNISONE [Concomitant]
     Dosage: 50 UNK, UNK
     Route: 048
     Dates: start: 20130623
  6. PREDNISONE [Concomitant]
     Dosage: 20 MG, UNK
     Route: 048
     Dates: start: 20130624
  7. PREDNISONE [Concomitant]
     Dosage: 50 UNK, UNK
     Route: 048
     Dates: start: 20130628
  8. METHYLPREDNISOLONE [Concomitant]
     Dosage: 500 MG, UNK
     Route: 042
     Dates: start: 20130620
  9. METHYLPREDNISOLONE [Concomitant]
     Dosage: 250 MG, UNK
     Route: 042
     Dates: start: 20130621
  10. METHYLPREDNISOLONE [Concomitant]
     Dosage: 100 MG, UNK
     Route: 042
     Dates: start: 20130622
  11. PROGRAF [Concomitant]
     Dosage: 2 MG, BID
     Route: 048
     Dates: start: 20130702

REACTIONS (10)
  - Pyelonephritis acute [Unknown]
  - Kidney transplant rejection [Unknown]
  - Glomerulonephritis [Unknown]
  - Tubulointerstitial nephritis [Unknown]
  - Glomerulosclerosis [Unknown]
  - Capillaritis [Unknown]
  - Kidney fibrosis [Unknown]
  - Lymphocytic infiltration [Unknown]
  - Urine output decreased [Unknown]
  - Oedema [Unknown]
